FAERS Safety Report 4816558-4 (Version None)
Quarter: 2005Q4

REPORT INFORMATION
  Report Type: 
  Country: None (occurrence: None)
  Receive Date: 20051101
  Receipt Date: 20051025
  Transmission Date: 20060501
  Serious: Yes (Life-Threatening, Hospitalization)
  Sender: FDA-Public Use
  Company Number: PHBS2005JP15805

PATIENT
  Age: 50 Year
  Sex: Male

DRUGS (2)
  1. VOLTAREN [Suspect]
     Indication: PAIN
     Dosage: 25 MG/DAY
     Route: 054
     Dates: start: 20050101, end: 20050101
  2. LOXONIN [Concomitant]
     Indication: PAIN
     Route: 048
     Dates: start: 20050101, end: 20050101

REACTIONS (4)
  - DEPRESSED LEVEL OF CONSCIOUSNESS [None]
  - EYE LUXATION [None]
  - GENERALISED ERYTHEMA [None]
  - RESPIRATORY ARREST [None]
